FAERS Safety Report 11088095 (Version 1)
Quarter: 2015Q2

REPORT INFORMATION
  Report Type: Spontaneous
  Country: US (occurrence: None)
  Receive Date: 20150501
  Receipt Date: 20150501
  Transmission Date: 20150821
  Serious: No
  Sender: FDA-Public Use
  Company Number: None

PATIENT
  Age: 20 Year
  Sex: Male
  Weight: 79.38 kg

DRUGS (5)
  1. ADDERALL XR [Suspect]
     Active Substance: AMPHETAMINE ASPARTATE\AMPHETAMINE SULFATE\DEXTROAMPHETAMINE SACCHARATE\DEXTROAMPHETAMINE SULFATE
     Indication: ATTENTION DEFICIT/HYPERACTIVITY DISORDER
     Dosage: 1 PILL, TWICE DAILY, TAKEN BY MOUTH
     Route: 048
     Dates: start: 20150417, end: 20150430
  2. VITAMIN D [Concomitant]
     Active Substance: CHOLECALCIFEROL
  3. ADDERALL XR [Concomitant]
     Active Substance: AMPHETAMINE ASPARTATE\AMPHETAMINE SULFATE\DEXTROAMPHETAMINE SACCHARATE\DEXTROAMPHETAMINE SULFATE
  4. FISH OIL [Concomitant]
     Active Substance: FISH OIL
  5. WELLBUTRIN SR [Concomitant]
     Active Substance: BUPROPION HYDROCHLORIDE

REACTIONS (8)
  - Anxiety [None]
  - Drug ineffective [None]
  - Dizziness [None]
  - Chest pain [None]
  - Product quality issue [None]
  - Decreased appetite [None]
  - Heart rate increased [None]
  - Product substitution issue [None]

NARRATIVE: CASE EVENT DATE: 20150430
